FAERS Safety Report 14592273 (Version 3)
Quarter: 2018Q2

REPORT INFORMATION
  Report Type: Report from Study
  Country: US (occurrence: US)
  Receive Date: 20180302
  Receipt Date: 20180403
  Transmission Date: 20180711
  Serious: Yes (Death, Hospitalization, Other)
  Sender: FDA-Public Use
  Company Number: US-GILEAD-2018-0322964

PATIENT
  Age: 12 Year
  Sex: Female

DRUGS (2)
  1. AMBRISENTAN [Suspect]
     Active Substance: AMBRISENTAN
     Indication: SICKLE CELL ANAEMIA
  2. AMBRISENTAN [Suspect]
     Active Substance: AMBRISENTAN
     Indication: PULMONARY HYPERTENSION
     Dosage: 5 MG, QD
     Route: 065
     Dates: start: 20120816, end: 20180101

REACTIONS (4)
  - Terminal state [Unknown]
  - Pulmonary arterial hypertension [Unknown]
  - Off label use [Recovered/Resolved]
  - Right ventricular failure [Fatal]

NARRATIVE: CASE EVENT DATE: 20170302
